FAERS Safety Report 24067224 (Version 2)
Quarter: 2024Q3

REPORT INFORMATION
  Report Type: Spontaneous
  Country: US (occurrence: US)
  Receive Date: 20240709
  Receipt Date: 20240802
  Transmission Date: 20241017
  Serious: No
  Sender: ROCHE
  Company Number: US-ROCHE-10000011411

PATIENT
  Age: 20 Year
  Sex: Female
  Weight: 92.98 kg

DRUGS (5)
  1. XOLAIR [Suspect]
     Active Substance: OMALIZUMAB
     Indication: Urticaria chronic
     Route: 058
  2. XOLAIR [Suspect]
     Active Substance: OMALIZUMAB
  3. EPIPEN [Concomitant]
     Active Substance: EPINEPHRINE
     Indication: Drug hypersensitivity
     Dosage: ONCE EVERY 15MINUTES AS NEEDED PER EPISODE
     Route: 058
     Dates: start: 201806
  4. ZYRTEC [Concomitant]
     Active Substance: CETIRIZINE HYDROCHLORIDE
     Dosage: TWO 10MG PILLS ONCE DAILY
     Route: 048
  5. FLONASE [Concomitant]
     Active Substance: FLUTICASONE PROPIONATE
     Dosage: TWO SPRAYS PER NOSTRIL
     Route: 045

REACTIONS (6)
  - Device defective [Unknown]
  - Device difficult to use [Unknown]
  - Syringe issue [Unknown]
  - Exposure via skin contact [Unknown]
  - Product dose omission issue [Unknown]
  - No adverse event [Unknown]

NARRATIVE: CASE EVENT DATE: 20240617
